FAERS Safety Report 23295457 (Version 1)
Quarter: 2023Q4

REPORT INFORMATION
  Report Type: Spontaneous
  Country: FR (occurrence: FR)
  Receive Date: 20231214
  Receipt Date: 20231214
  Transmission Date: 20240109
  Serious: Yes (Other)
  Sender: FDA-Public Use
  Company Number: None

PATIENT
  Age: 30 Year
  Sex: Male

DRUGS (4)
  1. ZOLPIDEM TARTRATE [Suspect]
     Active Substance: ZOLPIDEM TARTRATE
     Dosage: 10 MG, QD
     Route: 048
     Dates: start: 2023
  2. BROMAZEPAM [Suspect]
     Active Substance: BROMAZEPAM
     Dosage: 3 MG, QD
     Route: 048
     Dates: start: 2023
  3. ALPRAZOLAM [Suspect]
     Active Substance: ALPRAZOLAM
     Dosage: 0.5 MG, QD
     Route: 048
     Dates: start: 2023
  4. DIAZEPAM [Suspect]
     Active Substance: DIAZEPAM
     Dosage: 10 MG, TID
     Route: 048
     Dates: start: 2023

REACTIONS (1)
  - Drug use disorder [Unknown]

NARRATIVE: CASE EVENT DATE: 20230101
